FAERS Safety Report 10155627 (Version 2)
Quarter: 2014Q2

REPORT INFORMATION
  Report Type: Spontaneous
  Country: US (occurrence: US)
  Receive Date: 20140506
  Receipt Date: 20140521
  Transmission Date: 20141212
  Serious: Yes (Hospitalization)
  Sender: FDA-Public Use
  Company Number: US-GLAXOSMITHKLINE-A1040434A

PATIENT
  Age: 52 Year
  Sex: Female

DRUGS (6)
  1. FLOVENT [Suspect]
     Indication: CHRONIC OBSTRUCTIVE PULMONARY DISEASE
     Dosage: 2PUFF TWICE PER DAY
     Route: 055
     Dates: start: 20120508
  2. VENTOLIN [Suspect]
     Indication: CHRONIC OBSTRUCTIVE PULMONARY DISEASE
     Dosage: 2PUFF TWICE PER DAY
     Route: 055
     Dates: start: 20120508
  3. DIFLUCAN [Suspect]
     Indication: PRODUCT USED FOR UNKNOWN INDICATION
     Route: 065
  4. NAPROXEN [Suspect]
     Indication: PAIN
     Route: 065
  5. SYNTHROID [Concomitant]
  6. FLORAJEN [Concomitant]

REACTIONS (5)
  - Myocardial infarction [Recovering/Resolving]
  - Dyspnoea [Unknown]
  - Obstructive airways disorder [Unknown]
  - Electrocardiogram abnormal [Unknown]
  - Drug hypersensitivity [Unknown]
